FAERS Safety Report 4442457-6 (Version None)
Quarter: 2004Q3

REPORT INFORMATION
  Report Type: 
  Country: None (occurrence: None)
  Receive Date: 20040903
  Receipt Date: 20040706
  Transmission Date: 20050211
  Serious: Yes (Other)
  Sender: FDA-Public Use
  Company Number: 2004UW13928

PATIENT
  Sex: Female

DRUGS (4)
  1. CRESTOR [Suspect]
     Dosage: 10 MG PO
     Route: 048
  2. AMARYL [Concomitant]
  3. GLYSET [Concomitant]
  4. WATER PILL [Concomitant]

REACTIONS (5)
  - ARTHROPATHY [None]
  - CHOKING [None]
  - COUGH [None]
  - DIFFICULTY IN WALKING [None]
  - SINUS DISORDER [None]
